FAERS Safety Report 17915176 (Version 1)
Quarter: 2020Q2

REPORT INFORMATION
  Report Type: Spontaneous
  Country: FR (occurrence: FR)
  Receive Date: 20200618
  Receipt Date: 20200618
  Transmission Date: 20200714
  Serious: Yes (Hospitalization, Congenital Anomaly, Other)
  Sender: FDA-Public Use
  Company Number: FR-ABBVIE-20P-056-3443292-00

PATIENT
  Sex: Female
  Weight: 3.2 kg

DRUGS (1)
  1. DEPAKINE CHRONO [Suspect]
     Active Substance: VALPROATE SODIUM
     Indication: MATERNAL EXPOSURE TIMING UNSPECIFIED
     Route: 064

REACTIONS (53)
  - Diplegia [Unknown]
  - Clinodactyly [Unknown]
  - Unevaluable event [Unknown]
  - Memory impairment [Unknown]
  - Learning disorder [Unknown]
  - Arnold-Chiari malformation [Unknown]
  - Cerebrospinal fluid leakage [Unknown]
  - Motor neurone disease [Unknown]
  - Visual impairment [Unknown]
  - Brachymetatarsia [Unknown]
  - Spondylolisthesis [Unknown]
  - Lordosis [Unknown]
  - Inability to crawl [Unknown]
  - Urinary incontinence [Unknown]
  - Neurogenic bladder [Unknown]
  - Areflexia [Unknown]
  - Hypotonia [Unknown]
  - Ureteral replacement [Unknown]
  - Hypermetropia [Unknown]
  - Foetal exposure during pregnancy [Unknown]
  - Gait disturbance [Unknown]
  - Vesicoureteric reflux [Unknown]
  - Meningomyelocele [Unknown]
  - Hyperaesthesia [Unknown]
  - Faecaloma [Unknown]
  - Intellectual disability [Unknown]
  - Balance disorder [Unknown]
  - Foetal heart rate abnormal [Unknown]
  - Muscular weakness [Unknown]
  - Foot deformity [Unknown]
  - Dysuria [Unknown]
  - Gastrointestinal disorder [Unknown]
  - Spina bifida [Unknown]
  - Disturbance in attention [Unknown]
  - Musculoskeletal disorder [Unknown]
  - Scoliosis [Unknown]
  - Haematoma [Unknown]
  - Urinary tract disorder [Unknown]
  - Pyelonephritis acute [Unknown]
  - Coordination abnormal [Unknown]
  - Disorientation [Unknown]
  - Cerebral ventricle dilatation [Unknown]
  - Speech disorder developmental [Unknown]
  - Hydrocephalus [Unknown]
  - Muscle disorder [Unknown]
  - Anal dilatation [Unknown]
  - Constipation [Unknown]
  - Renal failure [Unknown]
  - Anal incontinence [Unknown]
  - Fine motor skill dysfunction [Unknown]
  - Skeletal dysplasia [Unknown]
  - Dysgraphia [Unknown]
  - Kyphosis [Unknown]
